FAERS Safety Report 5793931-1 (Version None)
Quarter: 2008Q2

REPORT INFORMATION
  Report Type: 
  Country: None (occurrence: None)
  Receive Date: 20080627
  Receipt Date: 20080618
  Transmission Date: 20081010
  Serious: Yes (Other)
  Sender: FDA-Public Use
  Company Number: US-BAYER-200812525BCC

PATIENT
  Age: 17 Year
  Sex: Male

DRUGS (1)
  1. ALKA SELTZER PLUS EFFERVESCENT [Suspect]
     Indication: DRUG USE FOR UNKNOWN INDICATION
     Dosage: TOTAL DAILY DOSE: 2 DF  UNIT DOSE: 1 DF
     Route: 048
     Dates: start: 20080617

REACTIONS (1)
  - HAEMOPTYSIS [None]
